FAERS Safety Report 5866528-2 (Version None)
Quarter: 2008Q3

REPORT INFORMATION
  Report Type: 
  Country: None (occurrence: None)
  Receive Date: 20080828
  Receipt Date: 20080828
  Transmission Date: 20090109
  Serious: Yes (Other)
  Sender: FDA-Public Use
  Company Number: None

PATIENT
  Age: 21 Day
  Sex: Male
  Weight: 1.98 kg

DRUGS (1)
  1. FERROUS SULFATE TAB [Suspect]
     Indication: ANAEMIA NEONATAL
     Dosage: 4MG QD PO
     Route: 048
     Dates: start: 20080820, end: 20080827

REACTIONS (2)
  - CIRCUMSTANCE OR INFORMATION CAPABLE OF LEADING TO MEDICATION ERROR [None]
  - MEDICATION ERROR [None]
